FAERS Safety Report 11587932 (Version 2)
Quarter: 2015Q4

REPORT INFORMATION
  Report Type: Spontaneous
  Country: US (occurrence: US)
  Receive Date: 20151001
  Receipt Date: 20151216
  Transmission Date: 20160304
  Serious: Yes (Other)
  Sender: FDA-Public Use
  Company Number: US-MEDA-2015030005

PATIENT
  Sex: Female

DRUGS (12)
  1. LAMICTAL [Suspect]
     Active Substance: LAMOTRIGINE
  2. DEPAKENE [Suspect]
     Active Substance: VALPROIC ACID
  3. KEPPRA [Suspect]
     Active Substance: LEVETIRACETAM
  4. ZONEGRAN [Suspect]
     Active Substance: ZONISAMIDE
  5. STIRIPENTOL [Suspect]
     Active Substance: STIRIPENTOL
  6. CLOBAZAM [Suspect]
     Active Substance: CLOBAZAM
  7. FELBATOL [Suspect]
     Active Substance: FELBAMATE
  8. CLONAZEPAM. [Suspect]
     Active Substance: CLONAZEPAM
  9. PHENOBARBITAL. [Suspect]
     Active Substance: PHENOBARBITAL
  10. TOPAMAX [Suspect]
     Active Substance: TOPIRAMATE
  11. ONFI [Suspect]
     Active Substance: CLOBAZAM
  12. VIMPAT [Suspect]
     Active Substance: LACOSAMIDE

REACTIONS (4)
  - Aphasia [Unknown]
  - Amnesia [Unknown]
  - Drug ineffective [Unknown]
  - Developmental delay [Unknown]
